FAERS Safety Report 22209180 (Version 1)
Quarter: 2023Q2

REPORT INFORMATION
  Report Type: Spontaneous
  Country: JP (occurrence: JP)
  Receive Date: 20230413
  Receipt Date: 20230413
  Transmission Date: 20230722
  Serious: Yes (Hospitalization, Other)
  Sender: FDA-Public Use
  Company Number: JP-NEUROCRINE BIOSCIENCES INC.-2023NBI03103

PATIENT

DRUGS (2)
  1. VALBENAZINE [Suspect]
     Active Substance: VALBENAZINE
     Indication: Product used for unknown indication
     Dosage: UNKNOWN
     Route: 048
  2. JARDIANCE [Concomitant]
     Active Substance: EMPAGLIFLOZIN
     Dosage: UNKNOWN
     Route: 065

REACTIONS (16)
  - Hyperglycaemia [Unknown]
  - Altered state of consciousness [Unknown]
  - Electrolyte imbalance [Unknown]
  - Urinary tract infection [Unknown]
  - Dementia with Lewy bodies [Unknown]
  - Dysphagia [Unknown]
  - Oral discomfort [Unknown]
  - Heart rate decreased [Unknown]
  - Bedridden [Unknown]
  - Underweight [Unknown]
  - Depression [Unknown]
  - Heart rate irregular [Unknown]
  - Asthenia [Unknown]
  - Somnolence [Unknown]
  - Drooling [Unknown]
  - Anxiety [Unknown]
